FAERS Safety Report 7908984-1 (Version None)
Quarter: 2011Q4

REPORT INFORMATION
  Report Type: 
  Country: None (occurrence: None)
  Receive Date: 20111110
  Receipt Date: 20111110
  Transmission Date: 20120403
  Serious: Yes (Hospitalization)
  Sender: FDA-Public Use
  Company Number: None

PATIENT
  Age: 88 Year
  Sex: Male
  Weight: 97.6 kg

DRUGS (1)
  1. GABAPENTIN [Suspect]
     Indication: PAIN
     Dosage: 100 MG TID PO
     Route: 048
     Dates: start: 20110318, end: 20110324

REACTIONS (7)
  - TREMOR [None]
  - SOMNOLENCE [None]
  - OEDEMA PERIPHERAL [None]
  - CHILLS [None]
  - ASTHENIA [None]
  - LETHARGY [None]
  - DEPRESSED LEVEL OF CONSCIOUSNESS [None]
